FAERS Safety Report 6201109-2 (Version None)
Quarter: 2009Q2

REPORT INFORMATION
  Report Type: 
  Country: None (occurrence: None)
  Receive Date: 20090526
  Receipt Date: 20090514
  Transmission Date: 20091009
  Serious: Yes (Hospitalization)
  Sender: FDA-Public Use
  Company Number: CA-BAYER-200917939NA

PATIENT
  Age: 62 Year
  Sex: Male
  Weight: 68 kg

DRUGS (12)
  1. AVELOX [Suspect]
     Indication: INFECTIVE EXACERBATION OF CHRONIC OBSTRUCTIVE AIRWAYS DISEASE
     Route: 048
     Dates: start: 20081009, end: 20081014
  2. UNIPHYL [Suspect]
     Indication: CHRONIC OBSTRUCTIVE PULMONARY DISEASE
     Dates: start: 20081009, end: 20081012
  3. UNIPHYL [Suspect]
  4. UNIPHYL [Suspect]
  5. ACTONEL [Concomitant]
     Dosage: AS USED: 35 MG  UNIT DOSE: 35 MG
     Route: 048
     Dates: start: 20081011
  6. ADVAIR HFA [Concomitant]
     Dosage: TOTAL DAILY DOSE: 4 PUFF
     Route: 055
     Dates: start: 20081008, end: 20081012
  7. CALCITE 500 + D3 400 [Concomitant]
     Route: 048
     Dates: start: 20081009
  8. HEPARIN SODIUM [Concomitant]
     Route: 058
  9. IPRATROPIUM BROMIDE [Concomitant]
     Dosage: PRN
  10. PREDNISONE [Concomitant]
     Dosage: BEFORE HOSPITALIZATION
     Dates: start: 20080927, end: 20081010
  11. SALBUTAMOL [Concomitant]
     Dosage: PRN
  12. SOLU-MEDROL [Concomitant]
     Route: 042
     Dates: start: 20081008, end: 20081010

REACTIONS (11)
  - ABDOMINAL DISCOMFORT [None]
  - COLITIS [None]
  - COLONOSCOPY ABNORMAL [None]
  - CROHN'S DISEASE [None]
  - DIARRHOEA [None]
  - ENTEROCOLITIS INFECTIOUS [None]
  - FLATULENCE [None]
  - GASTROINTESTINAL PAIN [None]
  - RECTAL HAEMORRHAGE [None]
  - SCAN ABDOMEN ABNORMAL [None]
  - TOXICOLOGIC TEST ABNORMAL [None]
